FAERS Safety Report 25734398 (Version 1)
Quarter: 2025Q3

REPORT INFORMATION
  Report Type: Spontaneous
  Country: TR (occurrence: TR)
  Receive Date: 20250828
  Receipt Date: 20250828
  Transmission Date: 20251021
  Serious: Yes (Other)
  Sender: AMGEN
  Company Number: TR-AMGEN-TURSP2025167664

PATIENT

DRUGS (1)
  1. ADALIMUMAB [Suspect]
     Active Substance: ADALIMUMAB
     Indication: Uveitis
     Route: 065

REACTIONS (10)
  - Iris adhesions [Unknown]
  - Cystoid macular oedema [Unknown]
  - Vitreous haemorrhage [Unknown]
  - Ocular hypertension [Unknown]
  - Retinoschisis [Unknown]
  - Optic atrophy [Unknown]
  - Cataract [Unknown]
  - Therapy non-responder [Unknown]
  - Epiretinal membrane [Unknown]
  - Keratopathy [Unknown]
